FAERS Safety Report 8827421 (Version 1)
Quarter: 2012Q4

REPORT INFORMATION
  Report Type: 
  Country: US (occurrence: US)
  Receive Date: 20121005
  Receipt Date: 20121005
  Transmission Date: 20130627
  Serious: No
  Sender: FDA-Public Use
  Company Number: US-BRISTOL-MYERS SQUIBB COMPANY-16539298

PATIENT
  Age: 87 Year
  Sex: Female

DRUGS (6)
  1. AVAPRO TABS 150 MG [Suspect]
     Indication: BLOOD PRESSURE ABNORMAL
     Route: 048
  2. NORVASC [Concomitant]
  3. LOPRESSOR [Concomitant]
  4. SYNTHROID [Concomitant]
  5. NITROFURANTOIN [Concomitant]
     Dosage: Caps.
  6. ALDACTONE [Concomitant]

REACTIONS (3)
  - Dysgeusia [Unknown]
  - Product taste abnormal [None]
  - Product quality issue [None]
